FAERS Safety Report 16424622 (Version 1)
Quarter: 2019Q2

REPORT INFORMATION
  Report Type: Spontaneous
  Country: JP (occurrence: JP)
  Receive Date: 20190613
  Receipt Date: 20190613
  Transmission Date: 20190711
  Serious: Yes (Hospitalization)
  Sender: FDA-Public Use
  Company Number: JP-SAKK-2019SA136071AA

PATIENT
  Age: 52 Year
  Sex: Male
  Weight: 65 kg

DRUGS (1)
  1. FABRAZYME [Suspect]
     Active Substance: AGALSIDASE BETA
     Indication: FABRY^S DISEASE
     Dosage: 65 MG, QOW
     Route: 041
     Dates: start: 20040512

REACTIONS (3)
  - Medical device site infection [Recovered/Resolved]
  - Medical device site discomfort [Recovered/Resolved]
  - Medical device site discolouration [Recovered/Resolved]

NARRATIVE: CASE EVENT DATE: 20190420
